FAERS Safety Report 12667984 (Version 3)
Quarter: 2017Q2

REPORT INFORMATION
  Report Type: Report from Study
  Country: CA (occurrence: CA)
  Receive Date: 20160819
  Receipt Date: 20170526
  Transmission Date: 20170830
  Serious: Yes (Other)
  Sender: FDA-Public Use
  Company Number: CA-GILEAD-2016-0228512

PATIENT
  Age: 38 Year
  Sex: Male

DRUGS (2)
  1. SOFOSBUVIR [Suspect]
     Active Substance: SOFOSBUVIR
     Indication: CHRONIC HEPATITIS C
     Dosage: UNK
     Route: 048
     Dates: start: 201412
  2. IBAVYR [Suspect]
     Active Substance: RIBAVIRIN
     Indication: CHRONIC HEPATITIS C
     Dosage: UNK
     Route: 048
     Dates: start: 201412

REACTIONS (7)
  - Mental disorder [Unknown]
  - Anxiety [Unknown]
  - Agitation [Unknown]
  - Hepatitis C [Unknown]
  - Hallucination [Unknown]
  - Drug ineffective [Unknown]
  - Psychotic disorder [Unknown]
